FAERS Safety Report 7225454-7 (Version None)
Quarter: 2011Q1

REPORT INFORMATION
  Report Type: 
  Country: None (occurrence: None)
  Receive Date: 20110113
  Receipt Date: 20110107
  Transmission Date: 20110831
  Serious: Yes (Other)
  Sender: FDA-Public Use
  Company Number: US-PFIZER INC-2011004986

PATIENT
  Sex: Male
  Weight: 147 kg

DRUGS (3)
  1. TRAMADOL [Concomitant]
     Indication: SHOULDER OPERATION
  2. VIAGRA [Suspect]
     Indication: WEIGHT DECREASED
     Dosage: UNK
     Route: 048
     Dates: start: 19990101, end: 20080101
  3. TRAMADOL [Concomitant]
     Indication: KNEE OPERATION
     Dosage: UNK

REACTIONS (1)
  - BACK DISORDER [None]
